FAERS Safety Report 9052396 (Version 1)
Quarter: 2013Q1

REPORT INFORMATION
  Report Type: Spontaneous
  Country: US (occurrence: US)
  Receive Date: 20130207
  Receipt Date: 20130207
  Transmission Date: 20140127
  Serious: Yes (Hospitalization)
  Sender: FDA-Public Use
  Company Number: US-JNJFOC-20130114565

PATIENT
  Age: 66 None
  Sex: Female

DRUGS (6)
  1. INVEGA SUSTENNA [Suspect]
     Indication: SCHIZOPHRENIA
     Route: 030
     Dates: start: 20130104
  2. COGENTIN [Concomitant]
     Route: 048
  3. DEPAKENE [Concomitant]
     Route: 048
  4. LOPRESSOR [Concomitant]
     Route: 048
  5. PEPCID [Concomitant]
     Route: 048
  6. VITAMIN B1 [Concomitant]
     Route: 065

REACTIONS (1)
  - Schizophrenia [Unknown]
